FAERS Safety Report 6984710-8 (Version None)
Quarter: 2010Q3

REPORT INFORMATION
  Report Type: 
  Country: None (occurrence: None)
  Receive Date: 20100915
  Receipt Date: 20100909
  Transmission Date: 20110219
  Serious: Yes (Hospitalization)
  Sender: FDA-Public Use
  Company Number: JP-BAYER-201011550BYL

PATIENT
  Age: 59 Year
  Sex: Male
  Weight: 82 kg

DRUGS (8)
  1. NEXAVAR [Suspect]
     Indication: HEPATIC NEOPLASM MALIGNANT
     Dosage: TOTAL DAILY DOSE: 400 MG  UNIT DOSE: 200 MG
     Route: 048
     Dates: start: 20100323
  2. HERLAT L [Concomitant]
     Dosage: UNIT DOSE: 20 MG
     Route: 048
     Dates: start: 20100419
  3. PARIET [Concomitant]
     Dosage: UNIT DOSE: 10 MG
     Route: 048
     Dates: start: 20080301
  4. FOSAMAC 35MG [Concomitant]
     Dosage: UNIT DOSE: 35 MG
     Route: 048
     Dates: start: 20080301
  5. PROMAC [Concomitant]
     Dosage: UNIT DOSE: 75 MG
     Route: 048
     Dates: start: 20100315
  6. PREDONINE [Concomitant]
     Route: 048
     Dates: start: 20080301
  7. HUMALOG MIX [Concomitant]
     Route: 058
     Dates: start: 20080301
  8. LIPITOR [Concomitant]
     Dosage: UNIT DOSE: 10 MG
     Route: 048
     Dates: start: 20100415, end: 20100802

REACTIONS (2)
  - BLOOD CREATINE PHOSPHOKINASE INCREASED [None]
  - PALMAR-PLANTAR ERYTHRODYSAESTHESIA SYNDROME [None]
